FAERS Safety Report 11049929 (Version 1)
Quarter: 2015Q2

REPORT INFORMATION
  Report Type: Spontaneous
  Country: US (occurrence: US)
  Receive Date: 20150420
  Receipt Date: 20150420
  Transmission Date: 20150821
  Serious: No
  Sender: FDA-Public Use
  Company Number: US-PURDUE-USA-2015-0120605

PATIENT
  Age: 48 Year
  Sex: Male
  Weight: 88.44 kg

DRUGS (1)
  1. OXYCONTIN [Suspect]
     Active Substance: OXYCODONE HYDROCHLORIDE
     Indication: PAIN
     Dosage: 60 MG, UNK
     Route: 048
     Dates: start: 2008

REACTIONS (7)
  - Oropharyngeal pain [Unknown]
  - Food allergy [Unknown]
  - Suspected counterfeit product [Unknown]
  - Product physical issue [Unknown]
  - Pain [Unknown]
  - Stomatitis [Unknown]
  - Wrong technique in drug usage process [Unknown]
